FAERS Safety Report 20328821 (Version 1)
Quarter: 2022Q1

REPORT INFORMATION
  Report Type: Report from Study
  Country: FR (occurrence: None)
  Receive Date: 20220112
  Receipt Date: 20220112
  Transmission Date: 20220423
  Serious: Yes (Other)
  Sender: FDA-Public Use
  Company Number: FR-Merck Healthcare KGaA-9266429

PATIENT
  Sex: Female

DRUGS (2)
  1. LEVOTHYROXINE [Suspect]
     Active Substance: LEVOTHYROXINE
     Indication: Product used for unknown indication
     Dosage: OLD FORMULATION
     Dates: end: 2017
  2. LEVOTHYROXINE [Suspect]
     Active Substance: LEVOTHYROXINE
     Dosage: NEW FORMULATION
     Dates: start: 201703

REACTIONS (5)
  - Paralysis [Unknown]
  - Fatigue [Unknown]
  - Weight increased [Unknown]
  - Mood swings [Unknown]
  - Headache [Unknown]
